FAERS Safety Report 25732751 (Version 1)
Quarter: 2025Q3

REPORT INFORMATION
  Report Type: Spontaneous
  Country: GB (occurrence: GB)
  Receive Date: 20250827
  Receipt Date: 20250827
  Transmission Date: 20251021
  Serious: Yes (Death)
  Sender: BIOGEN
  Company Number: GB-BIOGEN-2025BI01322014

PATIENT
  Age: 73 Year
  Sex: Female

DRUGS (1)
  1. PLEGRIDY [Suspect]
     Active Substance: PEGINTERFERON BETA-1A
     Indication: Multiple sclerosis
     Route: 050
     Dates: end: 20250822

REACTIONS (1)
  - Death [Fatal]

NARRATIVE: CASE EVENT DATE: 20250821
